FAERS Safety Report 4334613-2 (Version None)
Quarter: 2004Q2

REPORT INFORMATION
  Report Type: 
  Country: None (occurrence: None)
  Receive Date: 20040407
  Receipt Date: 20030411
  Transmission Date: 20050107
  Serious: Yes (Hospitalization, Other)
  Sender: FDA-Public Use
  Company Number: US-MERCK-0304USA01283

PATIENT
  Age: 74 Year
  Sex: Female
  Weight: 49 kg

DRUGS (8)
  1. ASPIRIN [Concomitant]
     Route: 065
  2. KLONOPIN [Concomitant]
     Route: 065
  3. PREMARIN [Concomitant]
     Route: 065
  4. FLONASE [Concomitant]
     Route: 065
  5. LOPID [Concomitant]
     Route: 065
  6. PREVACID [Concomitant]
     Route: 065
  7. VIOXX [Suspect]
     Indication: BACK PAIN
     Route: 048
     Dates: end: 20011101
  8. VIOXX [Suspect]
     Route: 048

REACTIONS (22)
  - ACUTE MYOCARDIAL INFARCTION [None]
  - ANAEMIA [None]
  - BACK PAIN [None]
  - CHEST WALL PAIN [None]
  - CONTUSION [None]
  - CORONARY ARTERY ATHEROSCLEROSIS [None]
  - DEPRESSION [None]
  - DIZZINESS [None]
  - DYSPNOEA [None]
  - EATING DISORDER [None]
  - EMOTIONAL DISTRESS [None]
  - FALL [None]
  - GASTROOESOPHAGEAL REFLUX DISEASE [None]
  - HYPERCHOLESTEROLAEMIA [None]
  - HYPERTENSION [None]
  - HYPOTENSION [None]
  - INJURY [None]
  - LUMBAR SPINAL STENOSIS [None]
  - PAIN IN EXTREMITY [None]
  - PALPITATIONS [None]
  - THYROID DISORDER [None]
  - VENTRICULAR FIBRILLATION [None]
